FAERS Safety Report 5279077-X (Version None)
Quarter: 2007Q1

REPORT INFORMATION
  Report Type: 
  Country: None (occurrence: None)
  Receive Date: 20070328
  Receipt Date: 20070316
  Transmission Date: 20070707
  Serious: Yes (Hospitalization)
  Sender: FDA-Public Use
  Company Number: PHBS2007JP04300

PATIENT
  Age: 39 Year
  Sex: Male

DRUGS (1)
  1. CYCLOSPORINE [Suspect]
     Indication: RENAL TRANSPLANT

REACTIONS (7)
  - COMPLICATIONS OF TRANSPLANTED KIDNEY [None]
  - DIALYSIS [None]
  - HYDRONEPHROSIS [None]
  - NEPHROPATHY TOXIC [None]
  - NEPHROSTOMY [None]
  - OLIGURIA [None]
  - POSTRENAL FAILURE [None]
